FAERS Safety Report 10153025 (Version 1)
Quarter: 2014Q2

REPORT INFORMATION
  Report Type: Spontaneous
  Country: CA (occurrence: CA)
  Receive Date: 20140505
  Receipt Date: 20140505
  Transmission Date: 20141212
  Serious: Yes (Other)
  Sender: FDA-Public Use
  Company Number: CA-IAC KOREA XML-CAN-2014-0004853

PATIENT
  Sex: Male

DRUGS (3)
  1. BUTRANS TRANSDERMAL PATCH [Suspect]
     Indication: PRODUCT USED FOR UNKNOWN INDICATION
     Dosage: 5 MCG, Q1H
     Route: 062
  2. BUTRANS TRANSDERMAL PATCH [Suspect]
     Dosage: 10 MCG, Q1H
     Route: 062
  3. BUTRANS TRANSDERMAL PATCH [Suspect]
     Dosage: 20 MCG, Q1H
     Route: 062

REACTIONS (3)
  - Delirium [Recovered/Resolved]
  - Hallucination [Recovered/Resolved]
  - Dysarthria [Recovered/Resolved]
